FAERS Safety Report 4527742-1 (Version None)
Quarter: 2004Q4

REPORT INFORMATION
  Report Type: 
  Country: None (occurrence: None)
  Receive Date: 20041215
  Receipt Date: 20041203
  Transmission Date: 20050328
  Serious: Yes (Hospitalization)
  Sender: FDA-Public Use
  Company Number: ES-ROCHE-388314

PATIENT
  Age: 36 Year
  Sex: Male

DRUGS (5)
  1. PEGASYS [Suspect]
     Indication: CHRONIC HEPATITIS
     Route: 065
  2. REBETOL [Suspect]
     Indication: CHRONIC HEPATITIS
     Route: 048
  3. STAVUDINE [Concomitant]
  4. LAMIVUDINE [Concomitant]
  5. EFAVIRENZ [Concomitant]

REACTIONS (8)
  - CARDIAC TAMPONADE [None]
  - CARDIOMEGALY [None]
  - DRUG TOLERANCE DECREASED [None]
  - LIVER DISORDER [None]
  - PERICARDIAL EFFUSION [None]
  - PLEURAL EFFUSION [None]
  - PYREXIA [None]
  - UPPER RESPIRATORY TRACT INFECTION [None]
